FAERS Safety Report 9221018 (Version 1)
Quarter: 2013Q2

REPORT INFORMATION
  Report Type: Spontaneous
  Country: GB (occurrence: GB)
  Receive Date: 20130409
  Receipt Date: 20130409
  Transmission Date: 20140414
  Serious: Yes (Disabling)
  Sender: FDA-Public Use
  Company Number: GB-009507513-1304GBR003249

PATIENT
  Age: 70 Year
  Sex: Female
  Weight: 101 kg

DRUGS (7)
  1. FOSAMAX [Suspect]
     Dosage: UNK
     Route: 048
     Dates: start: 20121203
  2. CALCIUM CARBONATE [Concomitant]
     Dosage: UNK
     Dates: start: 20121203
  3. OMEPRAZOLE [Concomitant]
     Dosage: UNK
     Dates: start: 20121203
  4. ACETAMINOPHEN [Concomitant]
     Dosage: UNK
     Dates: start: 20121203
  5. PREDNISOLONE [Concomitant]
     Dosage: UNK
     Dates: start: 20111203
  6. PREGABALIN [Concomitant]
     Dosage: UNK
     Dates: start: 20121203
  7. RAMIPRIL [Concomitant]
     Dosage: UNK
     Dates: start: 20121203

REACTIONS (1)
  - X-ray of pelvis and hip abnormal [Unknown]
